FAERS Safety Report 10600859 (Version 1)
Quarter: 2014Q4

REPORT INFORMATION
  Report Type: Spontaneous
  Country: US (occurrence: None)
  Receive Date: 20141121
  Receipt Date: 20141121
  Transmission Date: 20150529
  Serious: No
  Sender: FDA-Public Use
  Company Number: None

PATIENT
  Sex: Female
  Weight: 24.95 kg

DRUGS (19)
  1. GLYCOPYRROLATE. [Concomitant]
     Active Substance: GLYCOPYRROLATE
  2. ONDANSETRON ODT [Concomitant]
     Active Substance: ONDANSETRON
  3. PULMACORT [Concomitant]
  4. SODIUM CHOLORIDE [Concomitant]
  5. HYOSCYAMINE [Concomitant]
     Active Substance: HYOSCYAMINE
  6. MUCINEX (GUAIFENESIN) [Concomitant]
  7. XOPENEX [Concomitant]
     Active Substance: LEVALBUTEROL HYDROCHLORIDE
  8. NEXIUM [Suspect]
     Active Substance: ESOMEPRAZOLE MAGNESIUM
     Indication: GASTROOESOPHAGEAL REFLUX DISEASE
     Dosage: 40MG, DAILY, PACKET + CAPSULE
     Dates: start: 2012, end: 2013
  9. PRIMROSE OIL [Concomitant]
  10. ATIVAN [Concomitant]
     Active Substance: LORAZEPAM
  11. CALCIUM [Concomitant]
     Active Substance: CALCIUM
  12. LEVETIRACETEM (KEPPRA) [Concomitant]
  13. NEXIUM 20 MG PACKETS [Concomitant]
  14. SINGULAIR [Concomitant]
     Active Substance: MONTELUKAST SODIUM
  15. CYCLOBENZAPRINE (FLEXERIL) [Concomitant]
  16. ACEPHEN [Concomitant]
     Active Substance: ACETAMINOPHEN
  17. ALLEGRA [Concomitant]
     Active Substance: FEXOFENADINE HYDROCHLORIDE
  18. TEGRETOL [Concomitant]
     Active Substance: CARBAMAZEPINE
  19. DIGESTIVE AD PROBIOTIC [Concomitant]

REACTIONS (3)
  - Seizure [None]
  - Condition aggravated [None]
  - Aspiration [None]
